FAERS Safety Report 11465224 (Version 1)
Quarter: 2015Q3

REPORT INFORMATION
  Report Type: Spontaneous
  Country: US (occurrence: US)
  Receive Date: 20150907
  Receipt Date: 20150907
  Transmission Date: 20151125
  Serious: No
  Sender: FDA-Public Use
  Company Number: US-ASTRAZENECA-2015SE81925

PATIENT
  Age: 74 Year
  Sex: Male
  Weight: 96 kg

DRUGS (19)
  1. CRESTOR [Suspect]
     Active Substance: ROSUVASTATIN CALCIUM
     Route: 048
  2. LANTUS [Concomitant]
     Active Substance: INSULIN GLARGINE
  3. METOPROLOL [Concomitant]
     Active Substance: METOPROLOL
  4. FLAXSEED [Concomitant]
     Active Substance: FLAX SEED
  5. LEXAPRO [Concomitant]
     Active Substance: ESCITALOPRAM OXALATE
  6. FLOMAX [Concomitant]
     Active Substance: TAMSULOSIN HYDROCHLORIDE
  7. LISINOPRIL. [Concomitant]
     Active Substance: LISINOPRIL
  8. CRESTOR [Suspect]
     Active Substance: ROSUVASTATIN CALCIUM
     Route: 048
  9. MULTIVITAMIN [Concomitant]
     Active Substance: VITAMINS
  10. VITAMIN D [Concomitant]
     Active Substance: CHOLECALCIFEROL
  11. FISH OIL [Concomitant]
     Active Substance: FISH OIL
  12. IRON [Concomitant]
     Active Substance: IRON
  13. FOLIC ACID. [Concomitant]
     Active Substance: FOLIC ACID
  14. MELATONIN [Concomitant]
     Active Substance: MELATONIN
  15. PREVACID [Concomitant]
     Active Substance: LANSOPRAZOLE
  16. METFORMIN [Concomitant]
     Active Substance: METFORMIN HYDROCHLORIDE
  17. THIAMINE. [Concomitant]
     Active Substance: THIAMINE
  18. DIFLUCAN [Suspect]
     Active Substance: FLUCONAZOLE
     Indication: URINARY TRACT INFECTION
     Route: 048
     Dates: start: 20150729, end: 20150808
  19. BABY ASPIRIN [Concomitant]
     Active Substance: ASPIRIN

REACTIONS (7)
  - Drug dose omission [Unknown]
  - Steatorrhoea [Unknown]
  - Diarrhoea [Recovering/Resolving]
  - Flatulence [Recovering/Resolving]
  - Abnormal faeces [Recovering/Resolving]
  - Blood alkaline phosphatase increased [Unknown]
  - Back pain [Unknown]

NARRATIVE: CASE EVENT DATE: 2015
